FAERS Safety Report 23037902 (Version 1)
Quarter: 2023Q4

REPORT INFORMATION
  Report Type: Spontaneous
  Country: US (occurrence: US)
  Receive Date: 20231006
  Receipt Date: 20231006
  Transmission Date: 20240110
  Serious: Yes (Other)
  Sender: FDA-Public Use
  Company Number: US-AMGEN-USASP2023173171

PATIENT

DRUGS (2)
  1. XGEVA [Suspect]
     Active Substance: DENOSUMAB
     Indication: Product used for unknown indication
     Dosage: UNK
     Route: 065
  2. DOCETAXEL [Concomitant]
     Active Substance: DOCETAXEL

REACTIONS (5)
  - Orchidectomy [Unknown]
  - Metastases to bone [Not Recovered/Not Resolved]
  - Noninfective gingivitis [Unknown]
  - Gingival recession [Unknown]
  - Gingival pain [Unknown]
